FAERS Safety Report 19057364 (Version 1)
Quarter: 2021Q1

REPORT INFORMATION
  Report Type: Spontaneous
  Country: DE (occurrence: DE)
  Receive Date: 20210324
  Receipt Date: 20210324
  Transmission Date: 20210420
  Serious: Yes (Hospitalization)
  Sender: FDA-Public Use
  Company Number: NVSC2021DE059167

PATIENT
  Age: 15 Year
  Sex: Male
  Weight: 62 kg

DRUGS (1)
  1. IBUPROFEN. [Suspect]
     Active Substance: IBUPROFEN
     Indication: SUICIDAL IDEATION
     Dosage: 30000 MG, QD (30000 MG MILLGRAM(S) EVERY DAYS 50 SEPARATED DOSES  )
     Route: 048
     Dates: start: 20200307, end: 20200307

REACTIONS (3)
  - Intentional overdose [Unknown]
  - Toxicity to various agents [Unknown]
  - Metabolic acidosis [Unknown]

NARRATIVE: CASE EVENT DATE: 20200307
